FAERS Safety Report 19276396 (Version 1)
Quarter: 2021Q2

REPORT INFORMATION
  Report Type: Spontaneous
  Country: GB (occurrence: GB)
  Receive Date: 20210520
  Receipt Date: 20210520
  Transmission Date: 20210717
  Serious: Yes (Other)
  Sender: FDA-Public Use
  Company Number: GB-AUROBINDO-AUR-APL-2021-020624

PATIENT
  Age: 88 Year
  Sex: Female
  Weight: 53 kg

DRUGS (15)
  1. FUROSEMIDE. [Concomitant]
     Active Substance: FUROSEMIDE
     Indication: ILL-DEFINED DISORDER
     Dosage: UNK (TAKE ONE TABLET EACH MORNING)
     Route: 065
     Dates: start: 20210331
  2. GLYCERYL TRINITRATE [Concomitant]
     Active Substance: NITROGLYCERIN
     Indication: ILL-DEFINED DISORDER
     Dosage: UNK (ONE PUFF AS NEEDED FOR CHEST PAIN)
     Route: 065
     Dates: start: 20210120
  3. FLUVASTATIN [Concomitant]
     Active Substance: FLUVASTATIN SODIUM
     Indication: ILL-DEFINED DISORDER
     Dosage: UNK (TAKE ONE EARLY EVENING)
     Route: 065
     Dates: start: 20200715
  4. HYPROMELLOSE [Concomitant]
     Active Substance: HYPROMELLOSES
     Indication: ILL-DEFINED DISORDER
     Dosage: UNK (ONE DROP AS NEEDED)
     Route: 065
     Dates: start: 20200310
  5. NICORANDIL [Concomitant]
     Active Substance: NICORANDIL
     Indication: ILL-DEFINED DISORDER
     Dosage: UNK UNK, TWO TIMES A DAY (1 TO BE TAKEN)
     Route: 065
     Dates: start: 20201209
  6. ATENOLOL. [Concomitant]
     Active Substance: ATENOLOL
     Indication: ILL-DEFINED DISORDER
     Dosage: UNK UNK, DAILY (TAKE ONE TABLET)
     Route: 065
     Dates: start: 20201209
  7. EDOXABAN [Concomitant]
     Active Substance: EDOXABAN TOSYLATE
     Indication: ILL-DEFINED DISORDER
     Dosage: UNK (TAKE ONE EVERY EVENING)
     Route: 065
     Dates: start: 20210113
  8. ZOPICLONE [Concomitant]
     Active Substance: ZOPICLONE
     Indication: ILL-DEFINED DISORDER
     Dosage: UNK (TAKE ONE AT NIGHT PRN)
     Route: 065
     Dates: start: 20210303, end: 20210317
  9. RAMIPRIL. [Suspect]
     Active Substance: RAMIPRIL
     Indication: PRODUCT USED FOR UNKNOWN INDICATION
     Dosage: UNK
     Route: 065
     Dates: start: 20210510
  10. OXYBUTYNIN. [Concomitant]
     Active Substance: OXYBUTYNIN CHLORIDE
     Indication: ILL-DEFINED DISORDER
     Dosage: UNK UNK, TWO TIMES A DAY (TAKE ONE)
     Route: 065
     Dates: start: 20210127
  11. ACIDEX [Concomitant]
     Indication: ILL-DEFINED DISORDER
     Dosage: UNK (TWO TO FOUR 5ML SPOONFULS 4 TIMES A DAY AFTER M...)
     Route: 065
     Dates: start: 20210113
  12. ALENDRONIC ACID [Concomitant]
     Active Substance: ALENDRONIC ACID
     Indication: ILL-DEFINED DISORDER
     Dosage: UNK (TAKE ONE TABLET WEEKLY)
     Route: 065
     Dates: start: 20201027
  13. FAMOTIDINE. [Concomitant]
     Active Substance: FAMOTIDINE
     Indication: ILL-DEFINED DISORDER
     Dosage: UNK UNK, AS DIRECTED (TAKE ONE DAILY)
     Route: 065
     Dates: start: 20210205
  14. MONOMIL XL [Concomitant]
     Active Substance: ISOSORBIDE MONONITRATE
     Indication: ILL-DEFINED DISORDER
     Dosage: UNK (TAKE HALF TABLET (30MG)EVERY MORNING)
     Route: 065
     Dates: start: 20200715
  15. RAMIPRIL. [Concomitant]
     Active Substance: RAMIPRIL
     Indication: ILL-DEFINED DISORDER
     Dosage: UNK UNK, DAILY (TAKE ONE CAPSULE)
     Route: 065
     Dates: start: 20210422

REACTIONS (2)
  - Cough [Recovering/Resolving]
  - Balance disorder [Recovering/Resolving]

NARRATIVE: CASE EVENT DATE: 20210510
